FAERS Safety Report 6575904-4 (Version None)
Quarter: 2010Q1

REPORT INFORMATION
  Report Type: 
  Country: None (occurrence: None)
  Receive Date: 20100209
  Receipt Date: 20100202
  Transmission Date: 20100710
  Serious: Yes (Other)
  Sender: FDA-Public Use
  Company Number: JP-JNJFOC-20100101900

PATIENT
  Sex: Female

DRUGS (8)
  1. TOPINA [Suspect]
     Indication: EPILEPSY
     Route: 048
  2. TOPINA [Suspect]
     Route: 048
  3. TOPINA [Suspect]
     Route: 048
  4. HYDANTOL [Suspect]
     Indication: EPILEPSY
     Route: 048
  5. HYDANTOL [Suspect]
     Route: 048
  6. ZYPREXA [Suspect]
     Indication: SCHIZOPHRENIA
     Route: 048
  7. EXCEGRAN [Concomitant]
     Route: 048
  8. PHENOBARBITAL TAB [Concomitant]
     Route: 048

REACTIONS (1)
  - AMYOTROPHIC LATERAL SCLEROSIS [None]
